FAERS Safety Report 5654011-9 (Version None)
Quarter: 2008Q1

REPORT INFORMATION
  Report Type: 
  Country: None (occurrence: None)
  Receive Date: 20080306
  Receipt Date: 20080303
  Transmission Date: 20080703
  Serious: Yes (Disabling)
  Sender: FDA-Public Use
  Company Number: US-SANOFI-SYNTHELABO-A03200800808

PATIENT
  Sex: Male

DRUGS (3)
  1. LEUCOVORIN CALCIUM [Interacting]
     Indication: COLON CANCER METASTATIC
     Route: 042
  2. FLUOROURACIL [Interacting]
     Indication: COLON CANCER METASTATIC
     Route: 042
  3. ELOXATIN [Suspect]
     Indication: COLON CANCER METASTATIC
     Route: 042

REACTIONS (5)
  - DEHYDRATION [None]
  - DIARRHOEA HAEMORRHAGIC [None]
  - MALAISE [None]
  - QUALITY OF LIFE DECREASED [None]
  - WEIGHT DECREASED [None]
